FAERS Safety Report 12706489 (Version 4)
Quarter: 2016Q3

REPORT INFORMATION
  Report Type: Spontaneous
  Country: US (occurrence: US)
  Receive Date: 20160901
  Receipt Date: 20160923
  Transmission Date: 20161109
  Serious: Yes (Other)
  Sender: FDA-Public Use
  Company Number: US-PFIZER INC-2016361489

PATIENT
  Age: 71 Year
  Sex: Female
  Weight: 95.25 kg

DRUGS (1)
  1. VERAPAMIL HCL [Suspect]
     Active Substance: VERAPAMIL HYDROCHLORIDE
     Indication: HYPERTENSION
     Dosage: 240 MG, 1X/DAY (TAKING IT AT NIGHT)
     Route: 048
     Dates: start: 20160725

REACTIONS (12)
  - Joint dislocation [Unknown]
  - Ear discomfort [Recovering/Resolving]
  - Hair texture abnormal [Recovering/Resolving]
  - Blood pressure inadequately controlled [Not Recovered/Not Resolved]
  - Dizziness [Recovering/Resolving]
  - Ventricular extrasystoles [Not Recovered/Not Resolved]
  - Fall [Recovered/Resolved]
  - Ligament rupture [Unknown]
  - Headache [Not Recovered/Not Resolved]
  - Constipation [Not Recovered/Not Resolved]
  - Gait disturbance [Recovering/Resolving]
  - Dysstasia [Recovering/Resolving]

NARRATIVE: CASE EVENT DATE: 20160725
